FAERS Safety Report 21334242 (Version 1)
Quarter: 2022Q3

REPORT INFORMATION
  Report Type: Spontaneous
  Country: CN (occurrence: CN)
  Receive Date: 20220914
  Receipt Date: 20220914
  Transmission Date: 20221026
  Serious: Yes (Hospitalization, Other)
  Sender: FDA-Public Use
  Company Number: None

PATIENT
  Age: 32 Year
  Sex: Male
  Weight: 52.4 kg

DRUGS (6)
  1. CYCLOPHOSPHAMIDE [Suspect]
     Active Substance: CYCLOPHOSPHAMIDE
     Indication: Acute lymphocytic leukaemia
     Dosage: 600 MG, QD, DILUTED WITH 0.9% SODIUM CHLORIDE (500 ML) (PUMP)
     Route: 041
     Dates: start: 20220819, end: 20220819
  2. SODIUM CHLORIDE [Suspect]
     Active Substance: SODIUM CHLORIDE
     Indication: Medication dilution
     Dosage: 500 ML, QD, DILUTED IN CYCLOHOSPHAMIDE (600 MG) (PUMP)
     Route: 041
     Dates: start: 20220819, end: 20220819
  3. SODIUM CHLORIDE [Suspect]
     Active Substance: SODIUM CHLORIDE
     Dosage: 250 ML, Q7D, DILUTED IN DAUNORUBICIN HYDROCHLORIDE (50 MG), (PUMP)
     Route: 041
     Dates: start: 20220819, end: 20220902
  4. SODIUM CHLORIDE [Suspect]
     Active Substance: SODIUM CHLORIDE
     Dosage: 50 ML, Q7D, DILUTED IN VINCRISTINE SULFATE (2 MG)
     Route: 041
     Dates: start: 20220819, end: 20220902
  5. DAUNORUBICIN HYDROCHLORIDE [Suspect]
     Active Substance: DAUNORUBICIN HYDROCHLORIDE
     Indication: Acute lymphocytic leukaemia
     Dosage: 50 MG, Q7D, DILUTED WITH 0.9% SODIUM CHLORIDE (250 ML), (PUMP)
     Route: 041
     Dates: start: 20220819, end: 20220902
  6. VINCRISTINE SULFATE [Suspect]
     Active Substance: VINCRISTINE SULFATE
     Indication: Acute lymphocytic leukaemia
     Dosage: 2 MG, Q7D, DILUTED WITH 0.9% SODIUM CHLORIDE (50 ML)
     Route: 041
     Dates: start: 20220819, end: 20220902

REACTIONS (2)
  - Myelosuppression [Recovering/Resolving]
  - Platelet count decreased [Recovering/Resolving]

NARRATIVE: CASE EVENT DATE: 20220903
